FAERS Safety Report 8881082 (Version 1)
Quarter: 2012Q4

REPORT INFORMATION
  Report Type: 
  Country: US (occurrence: US)
  Receive Date: 20121101
  Receipt Date: 20121101
  Transmission Date: 20130627
  Serious: No
  Sender: FDA-Public Use
  Company Number: US-BAYER-2012-113016

PATIENT
  Age: 46 Year
  Sex: Female
  Weight: 69.39 kg

DRUGS (4)
  1. ALEVE CAPLET/TABLET,MIDOL EXTENDED RELIEF CAPLET [Suspect]
     Indication: BACK ACHE
     Route: 048
  2. ALKA-SELTZER PLUS COLD AND COUGH [Suspect]
     Indication: COLD SYMPTOMS
  3. LEVOTHYROXINE [Concomitant]
  4. VITAMINS [Concomitant]

REACTIONS (2)
  - Feeling abnormal [Recovered/Resolved]
  - Musculoskeletal discomfort [Recovered/Resolved]
